FAERS Safety Report 23422265 (Version 1)
Quarter: 2024Q1

REPORT INFORMATION
  Report Type: Spontaneous
  Country: US (occurrence: US)
  Receive Date: 20240119
  Receipt Date: 20240119
  Transmission Date: 20240410
  Serious: Yes (Other)
  Sender: FDA-Public Use
  Company Number: US-TEVA-VS-3135555

PATIENT
  Age: 37 Year

DRUGS (3)
  1. SIMVASTATIN [Suspect]
     Active Substance: SIMVASTATIN
     Indication: Arteriosclerosis coronary artery
     Route: 065
  2. SIMVASTATIN [Suspect]
     Active Substance: SIMVASTATIN
     Indication: Arteriosclerosis coronary artery
     Dosage: RECEIVED MAINTENANCE DOSAGE FOR SEVERAL YEARS
     Route: 065
  3. NIACIN [Suspect]
     Active Substance: NIACIN
     Indication: High density lipoprotein decreased
     Route: 065

REACTIONS (1)
  - Drug ineffective [Unknown]
